FAERS Safety Report 11024572 (Version 1)
Quarter: 2015Q2

REPORT INFORMATION
  Report Type: Spontaneous
  Country: GB (occurrence: GB)
  Receive Date: 20150414
  Receipt Date: 20150414
  Transmission Date: 20150821
  Serious: Yes (Life-Threatening)
  Sender: FDA-Public Use
  Company Number: GB-ACCORD-029919

PATIENT
  Age: 81 Year
  Sex: Male

DRUGS (3)
  1. TRIMETHOPRIM/TRIMETHOPRIM LACTATE/TRIMETHOPRIM SULFATE [Interacting]
     Active Substance: TRIMETHOPRIM
     Indication: PRODUCT USED FOR UNKNOWN INDICATION
  2. METHOTREXATE [Suspect]
     Active Substance: METHOTREXATE
     Indication: PRODUCT USED FOR UNKNOWN INDICATION
  3. ALLOPURINOL. [Concomitant]
     Active Substance: ALLOPURINOL

REACTIONS (6)
  - Neutropenic sepsis [Not Recovered/Not Resolved]
  - Drug interaction [Unknown]
  - Pancytopenia [Not Recovered/Not Resolved]
  - Bone marrow failure [None]
  - Myelodysplastic syndrome [Unknown]
  - Proctalgia [Not Recovered/Not Resolved]
